FAERS Safety Report 7645538-9 (Version None)
Quarter: 2011Q3

REPORT INFORMATION
  Report Type: 
  Country: None (occurrence: None)
  Receive Date: 20110729
  Receipt Date: 20110725
  Transmission Date: 20111222
  Serious: Yes (Other)
  Sender: FDA-Public Use
  Company Number: US-PFIZER INC-2011169374

PATIENT
  Sex: Female

DRUGS (2)
  1. ZOLOFT [Suspect]
     Dosage: UNK
  2. SERTRALINE HYDROCHLORIDE [Suspect]
     Dosage: UNK

REACTIONS (6)
  - TACHYPHRENIA [None]
  - FEELING ABNORMAL [None]
  - DECREASED APPETITE [None]
  - THINKING ABNORMAL [None]
  - FUNGAL INFECTION [None]
  - PARANOIA [None]
